FAERS Safety Report 7613403 (Version 5)
Quarter: 2018Q4

REPORT INFORMATION
  Report Type: Spontaneous
  Country: JP (occurrence: JP)
  Receive Date: 20100930
  Receipt Date: 20181009
  Transmission Date: 20190205
  Serious: Yes (Hospitalization, Other)
  Sender: FDA-Public Use
  Company Number: PHHY2010JP57193

PATIENT
  Age: 62 Year
  Sex: Male

DRUGS (3)
  1. COMTAN [Concomitant]
     Active Substance: ENTACAPONE
     Indication: PRODUCT USED FOR UNKNOWN INDICATION
     Dosage: UNK
     Route: 065
  2. SYMMETREL [Suspect]
     Active Substance: AMANTADINE HYDROCHLORIDE
     Indication: PARKINSON^S DISEASE
     Dosage: 50 MG, TID
     Route: 048
  3. LEVODOPA [Suspect]
     Active Substance: LEVODOPA
     Indication: PRODUCT USED FOR UNKNOWN INDICATION
     Route: 065

REACTIONS (16)
  - Speech disorder [Unknown]
  - Abnormal behaviour [Unknown]
  - Aggression [Unknown]
  - Renal impairment [Unknown]
  - Delusion [Unknown]
  - Irritability [Unknown]
  - Hyperhidrosis [Unknown]
  - Blood urea increased [Recovered/Resolved]
  - Tremor [Unknown]
  - Dehydration [Unknown]
  - Toxicity to various agents [Unknown]
  - Myoclonus [Recovered/Resolved]
  - Decreased appetite [Unknown]
  - Dyskinesia [Unknown]
  - Blood creatinine increased [Unknown]
  - Hallucination [Unknown]

NARRATIVE: CASE EVENT DATE: 20100827
